FAERS Safety Report 5031194-5 (Version None)
Quarter: 2006Q2

REPORT INFORMATION
  Report Type: 
  Country: None (occurrence: None)
  Receive Date: 20060621
  Receipt Date: 20060227
  Transmission Date: 20061013
  Serious: No
  Sender: FDA-Public Use
  Company Number: US-GLAXOSMITHKLINE-A0595348A

PATIENT
  Age: 65 Year
  Sex: Male

DRUGS (3)
  1. AVANDARYL [Suspect]
     Dosage: 4MG PER DAY
     Route: 048
     Dates: start: 20060224
  2. PREDNISONE [Concomitant]
  3. GLUCOPHAGE [Concomitant]

REACTIONS (1)
  - FATIGUE [None]
